FAERS Safety Report 8299391-3 (Version None)
Quarter: 2012Q2

REPORT INFORMATION
  Report Type: 
  Country: None (occurrence: None)
  Receive Date: 20120419
  Receipt Date: 20120413
  Transmission Date: 20120825
  Serious: Yes (Hospitalization)
  Sender: FDA-Public Use
  Company Number: PHHY2012CN020546

PATIENT
  Age: 51 Year
  Sex: Female

DRUGS (1)
  1. ZOLEDRONOC ACID [Suspect]
     Indication: OSTEOPOROSIS
     Dosage: 5 MG, UNK
     Route: 042
     Dates: start: 20120306

REACTIONS (7)
  - NAUSEA [None]
  - HAEMATURIA [None]
  - PROTEINURIA [None]
  - ANAEMIA [None]
  - VOMITING [None]
  - WHITE BLOOD CELL COUNT DECREASED [None]
  - PYREXIA [None]
